FAERS Safety Report 16805646 (Version 1)
Quarter: 2019Q3

REPORT INFORMATION
  Report Type: Spontaneous
  Country: KR (occurrence: KR)
  Receive Date: 20190913
  Receipt Date: 20190913
  Transmission Date: 20191005
  Serious: Yes (Death, Life-Threatening, Other)
  Sender: FDA-Public Use
  Company Number: KR-PFIZER INC-2019347860

PATIENT
  Age: 60 Year
  Sex: Female

DRUGS (2)
  1. XALKORI [Suspect]
     Active Substance: CRIZOTINIB
     Indication: LUNG ADENOCARCINOMA
     Dosage: 250 MG, 2X/DAY
     Route: 048
     Dates: start: 201707, end: 201902
  2. SERETIDE [Concomitant]
     Active Substance: FLUTICASONE PROPIONATE\SALMETEROL XINAFOATE
     Dosage: 250 UG, 2X/DAY
     Dates: start: 20170720, end: 20190820

REACTIONS (3)
  - Cerebral infarction [Fatal]
  - Neoplasm progression [Fatal]
  - Pulmonary embolism [Recovered/Resolved]

NARRATIVE: CASE EVENT DATE: 20180108
